FAERS Safety Report 25360279 (Version 1)
Quarter: 2025Q2

REPORT INFORMATION
  Report Type: Spontaneous
  Country: PT (occurrence: PT)
  Receive Date: 20250527
  Receipt Date: 20250527
  Transmission Date: 20250717
  Serious: Yes (Other)
  Sender: CELLTRION
  Company Number: PT-VA000000599-2024001033

PATIENT

DRUGS (10)
  1. ADALIMUMAB [Suspect]
     Active Substance: ADALIMUMAB
     Indication: Back pain
  2. ADALIMUMAB [Suspect]
     Active Substance: ADALIMUMAB
     Indication: Arthralgia
  3. ACETAMINOPHEN [Suspect]
     Active Substance: ACETAMINOPHEN
     Indication: Back pain
  4. ACETAMINOPHEN [Suspect]
     Active Substance: ACETAMINOPHEN
     Indication: Arthralgia
  5. ETORICOXIB [Suspect]
     Active Substance: ETORICOXIB
     Indication: Back pain
  6. ETORICOXIB [Suspect]
     Active Substance: ETORICOXIB
     Indication: Arthralgia
  7. PREDNISOLONE [Suspect]
     Active Substance: PREDNISOLONE
     Indication: Back pain
  8. PREDNISOLONE [Suspect]
     Active Substance: PREDNISOLONE
     Indication: Arthralgia
  9. METHOTREXATE [Suspect]
     Active Substance: METHOTREXATE
     Indication: Back pain
  10. METHOTREXATE [Suspect]
     Active Substance: METHOTREXATE
     Indication: Arthralgia

REACTIONS (4)
  - Rectal haemorrhage [Unknown]
  - Hepatomegaly [Unknown]
  - Arthritis enteropathic [Unknown]
  - Intentional product use issue [Unknown]

NARRATIVE: CASE EVENT DATE: 20210201
